FAERS Safety Report 22007987 (Version 2)
Quarter: 2023Q1

REPORT INFORMATION
  Report Type: Spontaneous
  Country: US (occurrence: US)
  Receive Date: 20230218
  Receipt Date: 20230320
  Transmission Date: 20230418
  Serious: Yes (Hospitalization)
  Sender: FDA-Public Use
  Company Number: US-JNJFOC-20230218884

PATIENT

DRUGS (2)
  1. INVEGA HAFYERA [Suspect]
     Active Substance: PALIPERIDONE PALMITATE
     Indication: Product used for unknown indication
     Route: 011
  2. INVEGA HAFYERA [Suspect]
     Active Substance: PALIPERIDONE PALMITATE

REACTIONS (2)
  - Condition aggravated [Unknown]
  - Therapeutic product effect decreased [Unknown]
